FAERS Safety Report 9246257 (Version 7)
Quarter: 2014Q3

REPORT INFORMATION
  Report Type: Spontaneous
  Country: US (occurrence: US)
  Receive Date: 20130422
  Receipt Date: 20140804
  Transmission Date: 20150326
  Serious: Yes (Hospitalization, Other)
  Sender: FDA-Public Use
  Company Number: US-009507513-1304USA010119

PATIENT
  Sex: Female
  Weight: 69.84 kg

DRUGS (5)
  1. FOSAMAX [Suspect]
     Active Substance: ALENDRONATE SODIUM
     Dosage: 70 MG, UNK
     Route: 048
     Dates: start: 200202, end: 200511
  2. ALENDRONATE SODIUM. [Suspect]
     Active Substance: ALENDRONATE SODIUM
     Indication: OSTEOPOROSIS
     Dosage: 70 MG, UNK
     Route: 048
     Dates: start: 200802
  3. FOSAMAX [Suspect]
     Active Substance: ALENDRONATE SODIUM
     Dosage: 70 MG, QW
     Route: 048
     Dates: start: 20011001, end: 20080212
  4. FOSAMAX [Suspect]
     Active Substance: ALENDRONATE SODIUM
     Indication: OSTEOPOROSIS
     Dosage: 10 MG, UNK
     Route: 048
     Dates: start: 200009, end: 200109
  5. FOSAMAX [Suspect]
     Active Substance: ALENDRONATE SODIUM
     Dosage: 70 MG, UNK
     Route: 048
     Dates: start: 200602, end: 200801

REACTIONS (31)
  - Exostosis [Unknown]
  - Blood cholesterol increased [Unknown]
  - Hip arthroplasty [Unknown]
  - Spinal decompression [Unknown]
  - Femur fracture [Unknown]
  - Cardiac murmur [Unknown]
  - Hypokalaemia [Unknown]
  - Cataract operation [Unknown]
  - Dyspnoea [Unknown]
  - Gout [Unknown]
  - Cataract [Unknown]
  - Hypertension [Unknown]
  - Osteoarthritis [Unknown]
  - Arthralgia [Unknown]
  - Muscle spasms [Unknown]
  - Adverse event [Unknown]
  - Lumbar spinal stenosis [Unknown]
  - Chest pain [Unknown]
  - Arthralgia [Unknown]
  - Low turnover osteopathy [Unknown]
  - Pelvic pain [Unknown]
  - Arthralgia [Unknown]
  - Intraocular lens implant [Unknown]
  - Adverse event [Unknown]
  - Dermatitis contact [Unknown]
  - Osteopenia [Unknown]
  - Anaemia [Unknown]
  - Uterine leiomyoma [Unknown]
  - Vertebral lesion [Unknown]
  - Postoperative wound infection [Unknown]
  - Muscle spasms [Recovered/Resolved]

NARRATIVE: CASE EVENT DATE: 200212
